FAERS Safety Report 15352094 (Version 1)
Quarter: 2018Q3

REPORT INFORMATION
  Report Type: Spontaneous
  Country: GR (occurrence: GR)
  Receive Date: 20180905
  Receipt Date: 20180905
  Transmission Date: 20181010
  Serious: Yes (Other)
  Sender: FDA-Public Use
  Company Number: GR-SA-2018SA243974

PATIENT
  Age: 71 Year
  Sex: Female

DRUGS (8)
  1. THYROHORMONE [Concomitant]
     Active Substance: LEVOTHYROXINE SODIUM
     Route: 048
  2. DEPON [Concomitant]
     Active Substance: ACETAMINOPHEN
     Route: 048
  3. COAPROVEL [Suspect]
     Active Substance: HYDROCHLOROTHIAZIDE\IRBESARTAN
     Indication: HYPERTENSION
     Dosage: UNK UNK, UNK
     Route: 048
  4. STELMINAL [Concomitant]
     Route: 048
  5. LONARID?N [Concomitant]
     Route: 048
  6. LYRICA [Concomitant]
     Active Substance: PREGABALIN
     Route: 048
  7. FEMARA [Concomitant]
     Active Substance: LETROZOLE
     Route: 048
  8. LEXOTANIL [Concomitant]
     Active Substance: BROMAZEPAM
     Route: 048

REACTIONS (2)
  - Bile duct cancer [Recovered/Resolved]
  - Uterine cancer [Recovered/Resolved]
